FAERS Safety Report 8900846 (Version 2)
Quarter: 2012Q4

REPORT INFORMATION
  Report Type: 
  Country: BR (occurrence: BR)
  Receive Date: 20121109
  Receipt Date: 20121126
  Transmission Date: 20130627
  Serious: Yes (Other)
  Sender: FDA-Public Use
  Company Number: BR-SANOFI-AVENTIS-2012SA081976

PATIENT
  Age: 69 Year
  Sex: Female

DRUGS (4)
  1. ARAVA [Suspect]
     Indication: RHEUMATOID ARTHRITIS
     Route: 065
     Dates: start: 200912, end: 2011
  2. ARAVA [Suspect]
     Indication: RHEUMATOID ARTHRITIS
     Route: 065
     Dates: start: 2011, end: 20121114
  3. ALENDRONATE [Suspect]
     Indication: OSTEOPOROSIS
     Dosage: strength:70 mg
     Route: 065
     Dates: start: 2009
  4. ALL OTHER THERAPEUTIC PRODUCTS [Suspect]
     Indication: LIVER DISORDER
     Route: 065

REACTIONS (6)
  - Finger deformity [Not Recovered/Not Resolved]
  - Hand deformity [Not Recovered/Not Resolved]
  - Pain [Not Recovered/Not Resolved]
  - Hypersensitivity [Unknown]
  - Rash macular [Unknown]
  - Pruritus [Recovered/Resolved]
